FAERS Safety Report 7095484-7 (Version None)
Quarter: 2010Q4

REPORT INFORMATION
  Report Type: 
  Country: None (occurrence: None)
  Receive Date: 20101102
  Receipt Date: 20101019
  Transmission Date: 20110411
  Serious: Yes (Hospitalization, Other)
  Sender: FDA-Public Use
  Company Number: 017582

PATIENT
  Sex: Female
  Weight: 68 kg

DRUGS (15)
  1. CERTOLIZUMAB PEGOL (CERTOLIZUMAB PEGOL) [Suspect]
     Indication: CROHN'S DISEASE
     Dosage: SEE IMAGE
     Route: 058
     Dates: end: 20100915
  2. CERTOLIZUMAB PEGOL (CERTOLIZUMAB PEGOL) [Suspect]
     Indication: CROHN'S DISEASE
     Dosage: SEE IMAGE
     Route: 058
     Dates: start: 20090604
  3. ANUGESIC HC [Concomitant]
  4. CIPROFLOXACIN [Concomitant]
  5. FAMOTIDINE [Concomitant]
  6. FENTANYL [Concomitant]
  7. VERSED [Concomitant]
  8. PREVACID [Concomitant]
  9. VENTOLIN [Concomitant]
  10. TYLENOL-500 [Concomitant]
  11. REACTINE /00884301/ [Concomitant]
  12. DOCUSATE [Concomitant]
  13. ACETAMINOPHEN [Concomitant]
  14. FENTANYL CITRATE [Concomitant]
  15. HEPARIN [Concomitant]

REACTIONS (12)
  - DIARRHOEA INFECTIOUS [None]
  - DYSPEPSIA [None]
  - EAR INFECTION [None]
  - FUNGAL INFECTION [None]
  - INTRACRANIAL VENOUS SINUS THROMBOSIS [None]
  - MASTOIDITIS [None]
  - MENINGITIS [None]
  - OTITIS EXTERNA [None]
  - PNEUMONIA [None]
  - SINUS CONGESTION [None]
  - TRANSFUSION-RELATED ACUTE LUNG INJURY [None]
  - URINARY TRACT INFECTION [None]
